FAERS Safety Report 9792748 (Version 1)
Quarter: 2014Q1

REPORT INFORMATION
  Report Type: Spontaneous
  Country: US (occurrence: US)
  Receive Date: 20140102
  Receipt Date: 20140102
  Transmission Date: 20141002
  Serious: No
  Sender: FDA-Public Use
  Company Number: US-SA-2013SA110520

PATIENT
  Age: 67 Year
  Sex: Female

DRUGS (12)
  1. AUBAGIO [Suspect]
     Indication: MULTIPLE SCLEROSIS
     Route: 048
     Dates: start: 201309
  2. ALPHAGAN [Concomitant]
  3. BACLOFEN [Concomitant]
  4. CALCIUM CARBONATE [Concomitant]
  5. CELEXA [Concomitant]
  6. ALL OTHER THERAPEUTIC PRODUCTS [Concomitant]
  7. ALL OTHER THERAPEUTIC PRODUCTS [Concomitant]
  8. CALCIUM CITRATE/ERGOCALCIFEROL [Concomitant]
  9. HYDROCODONE [Concomitant]
  10. LOVASTATIN [Concomitant]
  11. XANAX [Concomitant]
  12. ZANTAC [Concomitant]

REACTIONS (1)
  - Diarrhoea [Unknown]
